FAERS Safety Report 11428733 (Version 1)
Quarter: 2015Q3

REPORT INFORMATION
  Report Type: Spontaneous
  Country: US (occurrence: None)
  Receive Date: 20150827
  Receipt Date: 20150827
  Transmission Date: 20151125
  Serious: Yes (Other)
  Sender: FDA-Public Use
  Company Number: None

PATIENT
  Age: 59 Year
  Sex: Female
  Weight: 83.92 kg

DRUGS (3)
  1. TEA [Concomitant]
     Active Substance: TEA LEAF
  2. FLAX SEED [Concomitant]
     Active Substance: FLAX SEED
  3. TRIAMTERENE 75MG/HCTZ 50MG MFG MYLA [Suspect]
     Active Substance: HYDROCHLOROTHIAZIDE\TRIAMTERENE
     Indication: HYPERTENSION
     Route: 048

REACTIONS (8)
  - Constipation [None]
  - Nausea [None]
  - Abdominal distension [None]
  - Malaise [None]
  - Anal haemorrhage [None]
  - Rectal fissure [None]
  - Chills [None]
  - No therapeutic response [None]

NARRATIVE: CASE EVENT DATE: 20150824
